FAERS Safety Report 24058448 (Version 1)
Quarter: 2024Q3

REPORT INFORMATION
  Report Type: Spontaneous
  Country: US (occurrence: US)
  Receive Date: 20240708
  Receipt Date: 20240708
  Transmission Date: 20241016
  Serious: No
  Sender: EMD SERONO INC
  Company Number: US-Merck Healthcare KGaA-2024035866

PATIENT
  Age: 49 Year
  Sex: Male

DRUGS (3)
  1. MAVENCLAD [Suspect]
     Active Substance: CLADRIBINE
     Indication: Multiple sclerosis
     Dosage: FIRST YEAR THERAPY
  2. MAVENCLAD [Suspect]
     Active Substance: CLADRIBINE
     Dosage: SECOND YEAR FIRST MONTH THERAPY: 2 TABLETS ON DAY 1 TO 4 AND 1 TABLET ON DAY 5
     Dates: start: 20231028
  3. MAVENCLAD [Suspect]
     Active Substance: CLADRIBINE
     Dosage: SECOND YEAR SECOND MONTH THERAPY: 2 TABLETS ON DAY 1 TO 3 AND 1 TABLET ON DAY 4 TO 5
     Route: 048
     Dates: start: 20231202

REACTIONS (1)
  - Lymphocyte count decreased [Unknown]
